FAERS Safety Report 23974963 (Version 9)
Quarter: 2025Q4

REPORT INFORMATION
  Report Type: Spontaneous
  Country: US (occurrence: US)
  Receive Date: 20240614
  Receipt Date: 20251210
  Transmission Date: 20260118
  Serious: Yes (Other)
  Sender: PFIZER
  Company Number: US-PFIZER INC-PV202400077276

PATIENT
  Age: 72 Year
  Sex: Female

DRUGS (9)
  1. XELJANZ XR [Suspect]
     Active Substance: TOFACITINIB CITRATE
     Dosage: 11 MG
     Route: 048
  2. ATORVASTATIN [Concomitant]
     Active Substance: ATORVASTATIN
     Dosage: 10 MG
  3. FAMOTIDINE [Concomitant]
     Active Substance: FAMOTIDINE
     Dosage: 10 MG
  4. FOSAMAX [Concomitant]
     Active Substance: ALENDRONATE SODIUM
     Dosage: 10 MG
  5. LEVOTHYROXINE [Concomitant]
     Active Substance: LEVOTHYROXINE
     Dosage: 0.025
  6. MAGNESIUM [Concomitant]
     Active Substance: MAGNESIUM
     Dosage: 1 MG
  7. NIFEDIPINE [Concomitant]
     Active Substance: NIFEDIPINE
     Dosage: 10 MG
  8. TYLENOL [Concomitant]
     Active Substance: ACETAMINOPHEN
     Dosage: UNK
  9. VITAMIN B6 [Concomitant]
     Active Substance: PYRIDOXINE HYDROCHLORIDE
     Dosage: UNK

REACTIONS (13)
  - Upper limb fracture [Not Recovered/Not Resolved]
  - Rheumatoid arthritis [Unknown]
  - COVID-19 pneumonia [Unknown]
  - Shoulder fracture [Unknown]
  - Dysphonia [Unknown]
  - Blood pressure increased [Unknown]
  - Urinary tract infection [Unknown]
  - Diarrhoea [Unknown]
  - Abdominal pain upper [Unknown]
  - Brain fog [Unknown]
  - Lung disorder [Unknown]
  - Renal disorder [Unknown]
  - Anaemia [Unknown]

NARRATIVE: CASE EVENT DATE: 20230101
